FAERS Safety Report 23280149 (Version 3)
Quarter: 2024Q3

REPORT INFORMATION
  Report Type: Report from Study
  Country: KR (occurrence: KR)
  Receive Date: 20231210
  Receipt Date: 20240924
  Transmission Date: 20241017
  Serious: Yes (Hospitalization, Other)
  Sender: JOHNSON AND JOHNSON
  Company Number: KR-JNJFOC-20231182997

PATIENT
  Age: 65 Year
  Sex: Male
  Weight: 64 kg

DRUGS (38)
  1. ERLEADA [Suspect]
     Active Substance: APALUTAMIDE
     Indication: Hormone-dependent prostate cancer
     Route: 048
     Dates: start: 20230914, end: 20231024
  2. CALTRATE D [CALCIUM;COLECALCIFEROL] [Concomitant]
     Indication: Osteoporosis prophylaxis
     Route: 048
     Dates: start: 20230818
  3. FEXONADINE [Concomitant]
     Indication: Urticaria
     Route: 048
     Dates: start: 20231013, end: 20231026
  4. TOPIDERM [BETAMETHASONE DIPROPIONATE] [Concomitant]
     Indication: Urticaria
     Route: 061
     Dates: start: 20231013, end: 20231013
  5. PLASMA SOLUTION A [Concomitant]
     Indication: Vitamin supplementation
     Route: 042
     Dates: start: 20231020, end: 20231020
  6. DIETARY SUPPLEMENT\HERBALS\MILK THISTLE [Concomitant]
     Active Substance: MILK THISTLE
     Indication: Hepatitis
     Route: 048
     Dates: start: 20231026, end: 20231106
  7. PENNEL [ALLIUM SATIVUM OIL] [Concomitant]
     Indication: Hepatitis
     Route: 048
     Dates: start: 20231026, end: 20231106
  8. GASTER [Concomitant]
     Active Substance: FAMOTIDINE
     Indication: Gastrointestinal disorder therapy
     Route: 042
     Dates: start: 20231025, end: 20231029
  9. TRISONKIT [Concomitant]
     Indication: Pyrexia
     Route: 042
     Dates: start: 20231025, end: 20231029
  10. HEPA MERZ [NICOTINAMIDE;ORNITHINE ASPARTATE;RIBOFLAVIN] [Concomitant]
     Indication: Gastrointestinal disorder therapy
     Route: 042
     Dates: start: 20231025, end: 20231025
  11. DEXAMETHASONE [Concomitant]
     Active Substance: DEXAMETHASONE
     Indication: Urticaria
     Route: 042
     Dates: start: 20231025, end: 20231025
  12. PENIRAMIN [Concomitant]
     Indication: Urticaria
     Route: 042
     Dates: start: 20231025, end: 20231025
  13. PLASMA SOLUTION A [Concomitant]
     Indication: Vitamin supplementation
     Route: 042
     Dates: start: 20231025, end: 20231028
  14. TOPIDERM [BETAMETHASONE DIPROPIONATE] [Concomitant]
     Indication: Urticaria
     Route: 061
     Dates: start: 20231025, end: 20231025
  15. HEPA MERZ [NICOTINAMIDE;ORNITHINE ASPARTATE;RIBOFLAVIN] [Concomitant]
     Indication: Hepatitis
     Route: 042
     Dates: start: 20231026, end: 20231026
  16. XYZAL [Concomitant]
     Active Substance: LEVOCETIRIZINE DIHYDROCHLORIDE
     Indication: Urticaria
     Route: 048
     Dates: start: 20231026, end: 20231026
  17. PREDNISOLONE [Concomitant]
     Active Substance: PREDNISOLONE
     Indication: Urticaria
     Route: 048
     Dates: start: 20231026, end: 20231027
  18. METHYSOL [Concomitant]
     Indication: Urticaria
     Dates: start: 20231026, end: 20231026
  19. KABI PARACETAMOL [Concomitant]
     Indication: Pyrexia
     Route: 042
     Dates: start: 20231026, end: 20231026
  20. AMOBUROFEN [Concomitant]
     Indication: Urticaria
     Route: 042
     Dates: start: 20231026, end: 20231027
  21. HEPA MERZ [NICOTINAMIDE;ORNITHINE ASPARTATE;RIBOFLAVIN] [Concomitant]
     Indication: Hepatitis
     Route: 042
     Dates: start: 20231027, end: 20231028
  22. FEXONADINE [Concomitant]
     Indication: Urticaria
     Route: 048
     Dates: start: 20231027, end: 20231106
  23. METHYSOL [Concomitant]
     Indication: Urticaria
     Route: 042
     Dates: start: 20231027, end: 20231028
  24. PROPACETAMOL HYDROCHLORIDE [Concomitant]
     Active Substance: PROPACETAMOL HYDROCHLORIDE
     Indication: Pyrexia
     Route: 042
     Dates: start: 20231027, end: 20231028
  25. METHYSOL [Concomitant]
     Indication: Urticaria
     Route: 030
     Dates: start: 20231029, end: 20231030
  26. ALBUMIN 20 TRCS [Concomitant]
     Indication: Urticaria
     Route: 042
     Dates: start: 20231029, end: 20231030
  27. BANAN [Concomitant]
     Active Substance: CEFPODOXIME PROXETIL
     Indication: Pyrexia
     Route: 048
     Dates: start: 20231031, end: 20231031
  28. PREDNISOLONE [Concomitant]
     Active Substance: PREDNISOLONE
     Indication: Urticaria
     Route: 048
     Dates: start: 20231031, end: 20231106
  29. CEFDITOREN PIVOXIL [Concomitant]
     Active Substance: CEFDITOREN PIVOXIL
     Indication: Pyrexia
     Route: 048
     Dates: start: 20231101, end: 20231106
  30. LANSOPRAZOLE [Concomitant]
     Active Substance: LANSOPRAZOLE
     Indication: Gastrointestinal disorder therapy
     Route: 048
     Dates: start: 20231101, end: 20231106
  31. TOPIDERM [BETAMETHASONE DIPROPIONATE] [Concomitant]
     Indication: Urticaria
     Route: 061
     Dates: start: 20231103, end: 20231103
  32. FEXONADINE [Concomitant]
     Indication: Urticaria
     Dosage: 360 TAB PO
     Route: 048
     Dates: start: 20231107, end: 20231111
  33. PREDNISOLONE [Concomitant]
     Active Substance: PREDNISOLONE
     Indication: Urticaria
     Dates: start: 20231107, end: 20231115
  34. CEFDITOREN PIVOXIL [Concomitant]
     Active Substance: CEFDITOREN PIVOXIL
     Indication: Pyrexia
     Route: 048
     Dates: start: 20231107, end: 20231108
  35. LANSOPRAZOLE [Concomitant]
     Active Substance: LANSOPRAZOLE
     Indication: Gastrointestinal disorder therapy
     Route: 048
     Dates: start: 20231107, end: 20231108
  36. ESCORTEN [Concomitant]
     Indication: Gastrointestinal disorder therapy
     Dosage: 1 TAB PO
     Route: 048
     Dates: start: 20231109, end: 20231116
  37. FEXONADINE [Concomitant]
     Indication: Urticaria
     Route: 048
     Dates: start: 20231022, end: 20231024
  38. FEXONADINE [Concomitant]
     Indication: Drug reaction with eosinophilia and systemic symptoms
     Route: 048
     Dates: start: 20231025, end: 20231026

REACTIONS (3)
  - Drug reaction with eosinophilia and systemic symptoms [Not Recovered/Not Resolved]
  - Pyrexia [Recovered/Resolved]
  - Urticaria [Unknown]

NARRATIVE: CASE EVENT DATE: 20231003
